FAERS Safety Report 9221078 (Version 1)
Quarter: 2013Q2

REPORT INFORMATION
  Report Type: Spontaneous
  Country: JP (occurrence: JP)
  Receive Date: 20130409
  Receipt Date: 20130409
  Transmission Date: 20140414
  Serious: Yes (Hospitalization)
  Sender: FDA-Public Use
  Company Number: JP-PFIZER INC-2013108638

PATIENT
  Sex: 0

DRUGS (4)
  1. SULFASALAZINE [Suspect]
     Indication: COLITIS ULCERATIVE
     Dosage: UNK
     Route: 054
  2. PENTASA [Concomitant]
     Route: 054
  3. RINDERON [Concomitant]
     Route: 054
  4. ASACOL [Concomitant]

REACTIONS (1)
  - Disease progression [Unknown]
